FAERS Safety Report 24047668 (Version 2)
Quarter: 2024Q3

REPORT INFORMATION
  Report Type: Spontaneous
  Country: FR (occurrence: FR)
  Receive Date: 20240703
  Receipt Date: 20240711
  Transmission Date: 20241017
  Serious: Yes (Hospitalization, Other)
  Sender: MYLAN
  Company Number: FR-GRUNENTHAL-2024-121993

PATIENT
  Age: 5 Year
  Sex: Male

DRUGS (1)
  1. TRAMADOL [Suspect]
     Active Substance: TRAMADOL\TRAMADOL HYDROCHLORIDE
     Indication: Pain
     Dosage: UNK 100 MILLIGRAM PER MILLILITRE
     Route: 048

REACTIONS (11)
  - Pallor [Recovering/Resolving]
  - Hypotonia [Recovering/Resolving]
  - Oxygen saturation decreased [Recovering/Resolving]
  - Respiratory acidosis [Recovered/Resolved]
  - Altered state of consciousness [Recovered/Resolved]
  - Clonic convulsion [Recovered/Resolved]
  - Miosis [Recovered/Resolved]
  - Heart rate increased [Recovering/Resolving]
  - Somnolence [Recovering/Resolving]
  - Toxicity to various agents [Recovered/Resolved]
  - Accidental overdose [Recovered/Resolved]
